FAERS Safety Report 12869190 (Version 4)
Quarter: 2016Q4

REPORT INFORMATION
  Report Type: Spontaneous
  Country: US (occurrence: US)
  Receive Date: 20161021
  Receipt Date: 20161228
  Transmission Date: 20170207
  Serious: Yes (Hospitalization, Other)
  Sender: FDA-Public Use
  Company Number: US-009507513-1610USA006252

PATIENT
  Age: 63 Year
  Sex: Female

DRUGS (5)
  1. ZOCOR [Suspect]
     Active Substance: SIMVASTATIN
     Indication: HIV INFECTION
     Dosage: TAKEN FOR YEARS
     Route: 048
  2. EMTRICITABINE (+) RILPIVIRINE HYDROCHLORIDE (+) TENOFOVIR DISOPROXIL F [Interacting]
     Active Substance: EMTRICITABINE\RILPIVIRINE HYDROCHLORIDE\TENOFOVIR DISOPROXIL FUMARATE
     Indication: HIV INFECTION
     Dosage: TAKEN FOR YEARS
  3. ASPIRIN. [Concomitant]
     Active Substance: ASPIRIN
     Dosage: TAKEN FOR YEARS
     Route: 048
  4. COBICISTAT (+) ELVITEGRAVIR (+) EMTRICITABINE (+) TENOFOVIR DISOPROXIL [Interacting]
     Active Substance: COBICISTAT\ELVITEGRAVIR\EMTRICITABINE\TENOFOVIR
     Indication: HIV INFECTION
  5. SULFAMETHOXAZOLE (+) TRIMETHOPRIM [Concomitant]
     Active Substance: SULFAMETHOXAZOLE\TRIMETHOPRIM
     Dosage: TAKEN FOR YEARS

REACTIONS (3)
  - Dysphagia [Recovering/Resolving]
  - Rhabdomyolysis [Recovered/Resolved]
  - Drug interaction [Recovered/Resolved]
